FAERS Safety Report 4884146-X (Version None)
Quarter: 2005Q4

REPORT INFORMATION
  Report Type: 
  Country: None (occurrence: None)
  Receive Date: 20051201
  Receipt Date: 20050908
  Transmission Date: 20060501
  Serious: No
  Sender: FDA-Public Use
  Company Number: 2005PV001991

PATIENT
  Age: 69 Year
  Sex: Female

DRUGS (13)
  1. BYETTA [Suspect]
     Indication: DIABETES MELLITUS NON-INSULIN-DEPENDENT
     Dosage: 5 MCG; BID; SC
     Route: 058
     Dates: start: 20050815
  2. COUMADIN [Concomitant]
  3. PLAVIX [Concomitant]
  4. ISMO [Concomitant]
  5. LIPITOR [Concomitant]
  6. COREG [Concomitant]
  7. LANOXIN [Concomitant]
  8. ALTACE [Concomitant]
  9. DILTIAZEM HCL [Concomitant]
  10. SPIRONLACTONE [Concomitant]
  11. LASIX [Concomitant]
  12. GLYBURIDE [Concomitant]
  13. LEVOTHROID [Concomitant]

REACTIONS (2)
  - INTERNATIONAL NORMALISED RATIO INCREASED [None]
  - PROTHROMBIN TIME PROLONGED [None]
